FAERS Safety Report 9280093 (Version 1)
Quarter: 2013Q2

REPORT INFORMATION
  Report Type: Report from Study
  Country: DE (occurrence: DE)
  Receive Date: 20130509
  Receipt Date: 20130509
  Transmission Date: 20140414
  Serious: Yes (Other)
  Sender: FDA-Public Use
  Company Number: DE-ROCHE-1219999

PATIENT
  Age: 50 Year
  Sex: Female
  Weight: 88 kg

DRUGS (4)
  1. ZELBORAF [Suspect]
     Indication: METASTATIC MALIGNANT MELANOMA
     Route: 048
     Dates: start: 20130419, end: 20130502
  2. PANTOPRAZOLE [Concomitant]
     Dosage: QD
     Route: 048
     Dates: start: 2011
  3. VALSARTAN [Concomitant]
     Indication: HYPERTENSION
     Dosage: QD
     Route: 048
     Dates: start: 201101
  4. PHENPROGAMMA [Concomitant]
     Indication: PULMONARY EMBOLISM
     Route: 048
     Dates: start: 201211

REACTIONS (6)
  - Lymphopenia [Unknown]
  - Rash maculo-papular [Not Recovered/Not Resolved]
  - Hyperbilirubinaemia [Unknown]
  - Arthralgia [Unknown]
  - Dysgeusia [Recovered/Resolved]
  - Nausea [Unknown]
